FAERS Safety Report 10684023 (Version 1)
Quarter: 2014Q4

REPORT INFORMATION
  Report Type: Report from Study
  Country: US (occurrence: US)
  Receive Date: 20141230
  Receipt Date: 20141230
  Transmission Date: 20150529
  Serious: Yes (Hospitalization, Other)
  Sender: FDA-Public Use
  Company Number: US-SA-2014SA178745

PATIENT
  Age: 69 Year
  Sex: Female
  Weight: 89.35 kg

DRUGS (18)
  1. SYNTHROID [Concomitant]
     Active Substance: LEVOTHYROXINE SODIUM
  2. COREG [Concomitant]
     Active Substance: CARVEDILOL
  3. ASPIRIN. [Concomitant]
     Active Substance: ASPIRIN
  4. CANAGLIFLOZIN [Concomitant]
     Active Substance: CANAGLIFLOZIN
  5. AMBIEN [Suspect]
     Active Substance: ZOLPIDEM TARTRATE
     Indication: NAUSEA
     Dosage: EVERY SIX HOURS AS NEEDED?FOR NAUSEA
     Route: 065
     Dates: start: 20140203
  6. PHENERGAN [Concomitant]
     Active Substance: PROMETHAZINE HYDROCHLORIDE
     Indication: NAUSEA
     Dosage: 25 MG EVERY SIX HOURS AS NEEDED
     Dates: start: 20140203
  7. INSULIN [Concomitant]
     Active Substance: INSULIN NOS
  8. LEVEMIR [Concomitant]
     Active Substance: INSULIN DETEMIR
  9. MICARDIS HCT [Concomitant]
     Active Substance: HYDROCHLOROTHIAZIDE\TELMISARTAN
  10. KLOR-CON [Concomitant]
     Active Substance: POTASSIUM CHLORIDE
  11. NOVOLOG [Concomitant]
     Active Substance: INSULIN ASPART
  12. LIPITOR [Concomitant]
     Active Substance: ATORVASTATIN CALCIUM
     Dates: start: 20140203
  13. PRISTIQ EXTENDED RELEASE [Concomitant]
     Active Substance: DESVENLAFAXINE SUCCINATE
     Dates: start: 20140203
  14. CARDIZEM CD [Concomitant]
     Active Substance: DILTIAZEM HYDROCHLORIDE
     Dates: start: 20140203
  15. PLAVIX [Concomitant]
     Active Substance: CLOPIDOGREL BISULFATE
  16. LASIX [Concomitant]
     Active Substance: FUROSEMIDE
  17. ZOFRAN [Concomitant]
     Active Substance: ONDANSETRON HYDROCHLORIDE
  18. FERRIC CARBOXYMALTOSE [Concomitant]
     Active Substance: FERRIC CARBOXYMALTOSE
     Dosage: ONCE A WEEK FOR 2 WEEK
     Route: 065
     Dates: start: 20140210, end: 20140217

REACTIONS (11)
  - Blood iron decreased [Recovered/Resolved]
  - Skin abrasion [Recovered/Resolved]
  - Ecchymosis [Recovered/Resolved]
  - Acute myocardial infarction [Recovered/Resolved]
  - Chest discomfort [Recovered/Resolved]
  - Tenderness [Recovered/Resolved]
  - Asthenia [Recovered/Resolved]
  - Syncope [Recovered/Resolved]
  - Headache [Recovered/Resolved]
  - Fall [Recovered/Resolved]
  - Dizziness [Recovered/Resolved]

NARRATIVE: CASE EVENT DATE: 20140308
